FAERS Safety Report 9413646 (Version 1)
Quarter: 2013Q2

REPORT INFORMATION
  Report Type: Spontaneous
  Country: US (occurrence: None)
  Receive Date: 20130520
  Receipt Date: 20130520
  Transmission Date: 20140414
  Serious: No
  Sender: FDA-Public Use
  Company Number: 2013-00084

PATIENT
  Age: 65 Year
  Sex: Female
  Weight: 113.4 kg

DRUGS (2)
  1. ZICAM COLD REMEDY RAPIDMELTS [Suspect]
     Indication: NASOPHARYNGITIS
     Dosage: 1 RAPIDMELT EVERY 3-4 HOURS
     Dates: start: 20130325, end: 20130327
  2. LEVOTHYROXINE [Concomitant]

REACTIONS (3)
  - Ageusia [None]
  - Anosmia [None]
  - No therapeutic response [None]
